FAERS Safety Report 21624939 (Version 4)
Quarter: 2022Q4

REPORT INFORMATION
  Report Type: Spontaneous
  Country: PR (occurrence: PR)
  Receive Date: 20221122
  Receipt Date: 20221225
  Transmission Date: 20230113
  Serious: No
  Sender: FDA-Public Use
  Company Number: PR-JNJFOC-20221147122

PATIENT
  Age: 66 Year
  Sex: Male

DRUGS (3)
  1. ERLEADA [Suspect]
     Active Substance: APALUTAMIDE
     Indication: Prostate cancer
     Route: 048
     Dates: start: 202204
  2. ERLEADA [Suspect]
     Active Substance: APALUTAMIDE
     Route: 048
  3. ERLEADA [Suspect]
     Active Substance: APALUTAMIDE
     Route: 048

REACTIONS (5)
  - Fatigue [Recovering/Resolving]
  - Feeling hot [Unknown]
  - Back pain [Recovering/Resolving]
  - Prostatic specific antigen increased [Not Recovered/Not Resolved]
  - Product dose omission issue [Unknown]

NARRATIVE: CASE EVENT DATE: 20220801
